FAERS Safety Report 16587794 (Version 2)
Quarter: 2024Q1

REPORT INFORMATION
  Report Type: Spontaneous
  Country: JP (occurrence: JP)
  Receive Date: 20190717
  Receipt Date: 20240328
  Transmission Date: 20240410
  Serious: Yes (Life-Threatening, Hospitalization, Other)
  Sender: FDA-Public Use
  Company Number: JP-PFIZER INC-2019265449

PATIENT
  Age: 77 Year
  Sex: Female
  Weight: 45 kg

DRUGS (2)
  1. DOCETAXEL [Suspect]
     Active Substance: DOCETAXEL\DOCETAXEL ANHYDROUS
     Indication: Metastatic gastric cancer
     Dosage: 40 MG/M2, CYCLIC, (EVERY 3 WEEKS, (EVERY 3 WEEKS (ON DAY 1))
  2. TS-1 [Suspect]
     Active Substance: GIMERACIL\OTERACIL POTASSIUM\TEGAFUR
     Indication: Metastatic gastric cancer
     Dosage: 80 MG/M2, CYCLIC (ON DAYS 1-14, Q3 WEEK)

REACTIONS (4)
  - Sepsis [Recovered/Resolved]
  - Neutropenia [Recovered/Resolved]
  - Haematotoxicity [Recovered/Resolved]
  - Loss of personal independence in daily activities [Recovered/Resolved]
